FAERS Safety Report 5037787-3 (Version None)
Quarter: 2006Q2

REPORT INFORMATION
  Report Type: 
  Country: None (occurrence: None)
  Receive Date: 20060601
  Receipt Date: 20060211
  Transmission Date: 20061013
  Serious: No
  Sender: FDA-Public Use
  Company Number: 2006PV008520

PATIENT
  Age: 61 Year
  Sex: Male
  Weight: 88.4514 kg

DRUGS (6)
  1. BYETTA [Suspect]
     Indication: DIABETES MELLITUS NON-INSULIN-DEPENDENT
     Dosage: 10 MCG, BID, SC; 5 MCG;BID;SC
     Route: 058
     Dates: start: 20051201, end: 20060131
  2. BYETTA [Suspect]
     Indication: DIABETES MELLITUS NON-INSULIN-DEPENDENT
     Dosage: 10 MCG, BID, SC; 5 MCG;BID;SC
     Route: 058
     Dates: start: 20060201
  3. ACTOS [Concomitant]
  4. GLIPIZIDE [Concomitant]
  5. VYTORIN [Concomitant]
  6. ASPIRIN [Concomitant]

REACTIONS (6)
  - BLOOD GLUCOSE DECREASED [None]
  - DYSPEPSIA [None]
  - HEADACHE [None]
  - INJECTION SITE BRUISING [None]
  - INJECTION SITE NODULE [None]
  - TREMOR [None]
